FAERS Safety Report 6677561-5 (Version None)
Quarter: 2010Q2

REPORT INFORMATION
  Report Type: 
  Country: None (occurrence: None)
  Receive Date: 20100412
  Receipt Date: 20100212
  Transmission Date: 20101027
  Serious: No
  Sender: FDA-Public Use
  Company Number: US-ALEXION-A201000173

PATIENT
  Sex: Male

DRUGS (7)
  1. SOLIRIS [Suspect]
     Indication: PAROXYSMAL NOCTURNAL HAEMOGLOBINURIA
     Dosage: 600 MG, QW X4W
     Route: 042
     Dates: start: 20090701
  2. SOLIRIS [Suspect]
     Dosage: 900 MG, Q2W
     Route: 042
     Dates: start: 20090429
  3. PREDNISOLONE [Concomitant]
     Dosage: 5 MG, UNK
  4. PREDNISOLONE [Concomitant]
     Dosage: 4 MG, UNK
     Dates: start: 20091217
  5. LISINOPRIL [Concomitant]
  6. AVODART [Concomitant]
     Indication: PROSTATIC DISORDER
     Dosage: UNK
  7. HALOTESTIN [Concomitant]

REACTIONS (1)
  - ANAEMIA [None]
